FAERS Safety Report 6101833-6 (Version None)
Quarter: 2009Q1

REPORT INFORMATION
  Report Type: 
  Country: None (occurrence: None)
  Receive Date: 20090303
  Receipt Date: 20090303
  Transmission Date: 20090719
  Serious: No
  Sender: FDA-Public Use
  Company Number: None

PATIENT
  Sex: Female
  Weight: 62.1428 kg

DRUGS (2)
  1. KENALOG [Suspect]
     Indication: BURSITIS
     Dosage: LEFT AND RIGHT SHOULDER ONCE IM
     Route: 030
     Dates: start: 20080319, end: 20080319
  2. KENALOG [Suspect]
     Indication: BURSITIS
     Dosage: LEFT AND RIGHT ONCE INTRALESIONAL
     Route: 026
     Dates: start: 20080620, end: 20080620

REACTIONS (6)
  - ATROPHY [None]
  - DEFORMITY [None]
  - INJECTION SITE REACTION [None]
  - SKIN DISCOLOURATION [None]
  - SKIN DISORDER [None]
  - SKIN INDURATION [None]
